FAERS Safety Report 23367051 (Version 2)
Quarter: 2024Q1

REPORT INFORMATION
  Report Type: Spontaneous
  Country: US (occurrence: None)
  Receive Date: 20240104
  Receipt Date: 20240118
  Transmission Date: 20240410
  Serious: Yes (Hospitalization, Other)
  Sender: FDA-Public Use
  Company Number: US-ROCHE-3483773

PATIENT
  Age: 26 Year
  Sex: Female
  Weight: 54.48 kg

DRUGS (1)
  1. PULMOZYME [Suspect]
     Active Substance: DORNASE ALFA
     Indication: Cystic fibrosis
     Dosage: 1 VIAL VIA NEBULIZER 2 TIMES DAILY ;ONGOING: YES
     Route: 055
     Dates: start: 1993

REACTIONS (13)
  - Viral infection [Recovered/Resolved]
  - Pyrexia [Not Recovered/Not Resolved]
  - Blindness [Not Recovered/Not Resolved]
  - Tendonitis [Not Recovered/Not Resolved]
  - Myalgia [Not Recovered/Not Resolved]
  - Product odour abnormal [Unknown]
  - Nausea [Unknown]
  - Vomiting [Unknown]
  - Asthenia [Unknown]
  - Joint stiffness [Unknown]
  - Altered state of consciousness [Unknown]
  - Distal intestinal obstruction syndrome [Unknown]
  - Adrenal insufficiency [Unknown]

NARRATIVE: CASE EVENT DATE: 20120101
